FAERS Safety Report 9118715 (Version 1)
Quarter: 2013Q1

REPORT INFORMATION
  Report Type: Spontaneous
  Country: JP (occurrence: JP)
  Receive Date: 20130226
  Receipt Date: 20130226
  Transmission Date: 20140127
  Serious: Yes (Hospitalization)
  Sender: FDA-Public Use
  Company Number: JP-009507513-1302JPN009583

PATIENT
  Age: 52 Year
  Sex: Female

DRUGS (2)
  1. DEXAMETHASONE [Suspect]
     Indication: RECTAL CANCER
     Dosage: UNK, BIW
     Dates: start: 201207, end: 201211
  2. FLUOROURACIL [Suspect]
     Indication: CHEMOTHERAPY
     Dosage: UNK, BIW
     Route: 065
     Dates: start: 201207, end: 201211

REACTIONS (1)
  - Autoimmune thyroiditis [Recovering/Resolving]
